FAERS Safety Report 17757676 (Version 2)
Quarter: 2020Q3

REPORT INFORMATION
  Report Type: Report from Study
  Country: CO (occurrence: CO)
  Receive Date: 20200507
  Receipt Date: 20200514
  Transmission Date: 20201104
  Serious: Yes (Other)
  Sender: FDA-Public Use
  Company Number: PHHY2017CO120947

PATIENT
  Age: 54 Year
  Sex: Male
  Weight: 102 kg

DRUGS (7)
  1. XOLAIR [Suspect]
     Active Substance: OMALIZUMAB
     Indication: CHRONIC SPONTANEOUS URTICARIA
     Dosage: 300 MG, TWO TIMES A MONTH
     Route: 058
     Dates: start: 20170705
  2. LOVASTATIN. [Concomitant]
     Active Substance: LOVASTATIN
     Indication: PRODUCT USED FOR UNKNOWN INDICATION
     Route: 065
  3. FEXOFENADINE [Suspect]
     Active Substance: FEXOFENADINE HYDROCHLORIDE
     Indication: URTICARIA
     Dosage: 2 DF, BID (2 PILLS IN THE MORNING, 2 IN THE NIGHT)
     Route: 065
  4. XOLAIR [Suspect]
     Active Substance: OMALIZUMAB
     Dosage: 600 MG, QMO
     Route: 065
  5. SANDIMMUN NEORAL [Suspect]
     Active Substance: CYCLOSPORINE
     Indication: URTICARIA
     Dosage: UNK
     Route: 065
     Dates: start: 20170501
  6. LOSARTAN. [Suspect]
     Active Substance: LOSARTAN
     Indication: PRODUCT USED FOR UNKNOWN INDICATION
     Dosage: 1 DF, QD
     Route: 065
  7. ESOMEPRAZOLE. [Suspect]
     Active Substance: ESOMEPRAZOLE MAGNESIUM
     Indication: PRODUCT USED FOR UNKNOWN INDICATION
     Route: 065

REACTIONS (9)
  - Lymphadenopathy [Unknown]
  - Anxiety [Unknown]
  - Diarrhoea [Unknown]
  - Angioedema [Unknown]
  - Urticaria [Not Recovered/Not Resolved]
  - Mouth swelling [Unknown]
  - Malaise [Unknown]
  - Drug ineffective [Unknown]
  - Therapeutic response decreased [Unknown]

NARRATIVE: CASE EVENT DATE: 20170809
